FAERS Safety Report 20510236 (Version 1)
Quarter: 2022Q1

REPORT INFORMATION
  Report Type: Spontaneous
  Country: US (occurrence: US)
  Receive Date: 20220224
  Receipt Date: 20220224
  Transmission Date: 20220423
  Serious: No
  Sender: FDA-Public Use
  Company Number: US-STRIDES ARCOLAB LIMITED-2021SP031703

PATIENT
  Age: 60 Year
  Sex: Female

DRUGS (4)
  1. LOPERAMIDE [Suspect]
     Active Substance: LOPERAMIDE
     Indication: Prophylaxis
     Dosage: 4 MILLIGRAM, TID
     Route: 065
  2. CAPECITABINE [Concomitant]
     Active Substance: CAPECITABINE
     Indication: Breast cancer metastatic
     Dosage: 1000 MILLIGRAM, BID
     Route: 065
  3. NERATINIB [Concomitant]
     Active Substance: NERATINIB
     Indication: Breast cancer metastatic
     Dosage: 240 MILLIGRAM PER DAY
     Route: 065
  4. NERATINIB [Concomitant]
     Active Substance: NERATINIB
     Dosage: UNK, RE-INITIATED
     Route: 065

REACTIONS (2)
  - Nausea [Recovered/Resolved]
  - Constipation [Recovered/Resolved]
